FAERS Safety Report 8618904-2 (Version None)
Quarter: 2012Q3

REPORT INFORMATION
  Report Type: 
  Country: None (occurrence: None)
  Receive Date: 20120824
  Receipt Date: 20120821
  Transmission Date: 20120928
  Serious: Yes (Other)
  Sender: FDA-Public Use
  Company Number: AR-PFIZER INC-2012206079

PATIENT
  Age: 63 Year
  Sex: Female

DRUGS (1)
  1. XANAX [Suspect]
     Dosage: 0.75 MG, 1X/DAY

REACTIONS (2)
  - EYE DISORDER [None]
  - LIP DRY [None]
